FAERS Safety Report 4747641-X (Version None)
Quarter: 2005Q3

REPORT INFORMATION
  Report Type: 
  Country: None (occurrence: None)
  Receive Date: 20050818
  Receipt Date: 20050318
  Transmission Date: 20060218
  Serious: No
  Sender: FDA-Public Use
  Company Number: US-BRISTOL-MYERS SQUIBB COMPANY-12902961

PATIENT
  Age: 70 Year
  Sex: Female
  Weight: 45 kg

DRUGS (2)
  1. TEQUIN [Suspect]
     Indication: LYMPHADENOPATHY
     Route: 048
     Dates: start: 20050315
  2. ATENOL [Concomitant]

REACTIONS (2)
  - NAUSEA [None]
  - SYNCOPE [None]
